FAERS Safety Report 16137295 (Version 6)
Quarter: 2020Q4

REPORT INFORMATION
  Report Type: Spontaneous
  Country: US (occurrence: US)
  Receive Date: 20190401
  Receipt Date: 20201117
  Transmission Date: 20210113
  Serious: Yes (Hospitalization)
  Sender: FDA-Public Use
  Company Number: US-SA-2019SA085052

PATIENT

DRUGS (2)
  1. TOUJEO [Suspect]
     Active Substance: INSULIN GLARGINE
     Indication: TYPE 2 DIABETES MELLITUS
     Dosage: 34 U, QD, (3 YEARS AGO)
     Route: 065
     Dates: start: 2016
  2. TOUJEO [Suspect]
     Active Substance: INSULIN GLARGINE
     Dosage: 46 IU, HS
     Route: 065
     Dates: start: 2019

REACTIONS (7)
  - Fall [Unknown]
  - Injection site pain [Unknown]
  - Product dose omission issue [Unknown]
  - Product storage error [Unknown]
  - Device issue [Unknown]
  - Blood glucose increased [Unknown]
  - Hip surgery [Unknown]

NARRATIVE: CASE EVENT DATE: 2019
